FAERS Safety Report 12783189 (Version 1)
Quarter: 2016Q3

REPORT INFORMATION
  Report Type: Report from Study
  Country: US (occurrence: US)
  Receive Date: 20160927
  Receipt Date: 20160927
  Transmission Date: 20161109
  Serious: Yes (Other)
  Sender: FDA-Public Use
  Company Number: US-BEH-2010022551

PATIENT
  Age: 29 Year
  Sex: Female
  Weight: 64.28 kg

DRUGS (2)
  1. IVIG LYOPHILIZED [Suspect]
     Active Substance: HUMAN IMMUNOGLOBULIN G
     Indication: IMMUNODEFICIENCY COMMON VARIABLE
     Route: 042
     Dates: start: 20060712, end: 20060713
  2. PROTONIX [Concomitant]
     Active Substance: PANTOPRAZOLE SODIUM

REACTIONS (6)
  - Urticaria [Recovered/Resolved]
  - Dyspnoea [Recovered/Resolved]
  - Throat tightness [Recovered/Resolved]
  - Chills [Unknown]
  - Pruritus [Unknown]
  - Type I hypersensitivity [Unknown]

NARRATIVE: CASE EVENT DATE: 20060712
